FAERS Safety Report 16246332 (Version 2)
Quarter: 2019Q2

REPORT INFORMATION
  Report Type: Report from Study
  Country: None (occurrence: NL)
  Receive Date: 20190426
  Receipt Date: 20190529
  Transmission Date: 20190711
  Serious: Yes (Death)
  Sender: FDA-Public Use
  Company Number: NL-ABBVIE-19S-114-2759019-00

PATIENT
  Age: 86 Year
  Sex: Male

DRUGS (1)
  1. DUODOPA [Suspect]
     Active Substance: CARBIDOPA\LEVODOPA
     Indication: PARKINSON^S DISEASE
     Route: 050
     Dates: start: 20141208

REACTIONS (4)
  - Fall [Fatal]
  - Gastrointestinal disorder [Fatal]
  - Pain [Fatal]
  - Abnormal faeces [Fatal]

NARRATIVE: CASE EVENT DATE: 20190420
